FAERS Safety Report 6892463-7 (Version None)
Quarter: 2010Q3

REPORT INFORMATION
  Report Type: 
  Country: None (occurrence: None)
  Receive Date: 20100731
  Receipt Date: 20080530
  Transmission Date: 20110219
  Serious: No
  Sender: FDA-Public Use
  Company Number: US-PFIZER INC-2008026850

PATIENT
  Age: 61 Year
  Sex: Male
  Weight: 86.4 kg

DRUGS (6)
  1. NEURONTIN [Suspect]
     Indication: NEUROPATHY PERIPHERAL
     Dates: start: 20070101
  2. LYRICA [Suspect]
     Indication: NEUROPATHY PERIPHERAL
     Dates: start: 20080301
  3. CLONAZEPAM [Suspect]
  4. GINKO BILOBA [Suspect]
     Dates: end: 20080321
  5. VITAMIN B-12 [Concomitant]
  6. SAW PALMETTO [Concomitant]

REACTIONS (12)
  - ABDOMINAL DISCOMFORT [None]
  - BACK DISORDER [None]
  - BURNING SENSATION [None]
  - DIZZINESS [None]
  - DRUG EFFECT DECREASED [None]
  - DRUG INEFFECTIVE [None]
  - GASTROOESOPHAGEAL REFLUX DISEASE [None]
  - HYPOAESTHESIA [None]
  - PHOTOSENSITIVITY REACTION [None]
  - SINUS DISORDER [None]
  - SOMNOLENCE [None]
  - WEIGHT INCREASED [None]
